FAERS Safety Report 6411387-2 (Version None)
Quarter: 2009Q4

REPORT INFORMATION
  Report Type: 
  Country: None (occurrence: None)
  Receive Date: 20091023
  Receipt Date: 20091013
  Transmission Date: 20100525
  Serious: Yes (Hospitalization)
  Sender: FDA-Public Use
  Company Number: FR-PFIZER INC-2009286030

PATIENT
  Age: 89 Year

DRUGS (12)
  1. ATARAX [Suspect]
     Indication: ANXIETY
     Dosage: 25 MG, DAILY AT NIGHT
     Route: 048
     Dates: end: 20090730
  2. TIAPRIDAL [Suspect]
     Dosage: UNK
     Route: 048
     Dates: end: 20090730
  3. DOLIPRANE [Concomitant]
     Dosage: UNK
  4. NEO-MERCAZOLE TAB [Concomitant]
     Dosage: UNK
  5. SPIRIVA [Concomitant]
     Dosage: UNK
  6. SYMBICORT [Concomitant]
     Dosage: UNK
  7. LASILIX [Concomitant]
     Dosage: UNK
  8. FORLAX [Concomitant]
     Dosage: UNK
  9. XALATAN [Concomitant]
     Dosage: UNK
  10. CALCIUM [Concomitant]
     Dosage: UNK
  11. DIFFU K [Concomitant]
     Dosage: UNK
  12. IDARAC [Concomitant]
     Dosage: UNK

REACTIONS (2)
  - ATRIAL FIBRILLATION [None]
  - BRADYCARDIA [None]
